FAERS Safety Report 7796261-1 (Version None)
Quarter: 2011Q4

REPORT INFORMATION
  Report Type: 
  Country: None (occurrence: None)
  Receive Date: 20111004
  Receipt Date: 20110928
  Transmission Date: 20120403
  Serious: Yes (Death, Hospitalization)
  Sender: FDA-Public Use
  Company Number: DE-GLAXOSMITHKLINE-D0072355A

PATIENT
  Sex: Male
  Weight: 75 kg

DRUGS (3)
  1. AMBRISENTAN [Suspect]
     Indication: PULMONARY ARTERIAL HYPERTENSION
     Dosage: 10 MG, UNK
     Route: 048
  2. MARCUMAR [Concomitant]
  3. REVATIO [Concomitant]

REACTIONS (2)
  - HAEMORRHAGE [None]
  - RIGHT VENTRICULAR FAILURE [None]
